FAERS Safety Report 12223360 (Version 1)
Quarter: 2016Q1

REPORT INFORMATION
  Report Type: Spontaneous
  Country: US (occurrence: US)
  Receive Date: 20160330
  Receipt Date: 20160330
  Transmission Date: 20160526
  Serious: Yes (Other)
  Sender: FDA-Public Use
  Company Number: US-TEVA-646830USA

PATIENT
  Sex: Male

DRUGS (1)
  1. COPAXONE [Suspect]
     Active Substance: GLATIRAMER ACETATE
     Indication: MULTIPLE SCLEROSIS
     Dates: start: 2001, end: 2007

REACTIONS (3)
  - Secondary progressive multiple sclerosis [Not Recovered/Not Resolved]
  - Product use issue [Unknown]
  - Motor dysfunction [Unknown]

NARRATIVE: CASE EVENT DATE: 2002
